FAERS Safety Report 7653572-8 (Version None)
Quarter: 2011Q3

REPORT INFORMATION
  Report Type: 
  Country: None (occurrence: None)
  Receive Date: 20110803
  Receipt Date: 20110726
  Transmission Date: 20111222
  Serious: Yes (Death, Other)
  Sender: FDA-Public Use
  Company Number: GXBR2011US03012

PATIENT
  Sex: Female

DRUGS (1)
  1. AMIODARONE HYDROCHLORIDE [Suspect]
     Dosage: 200 MG, UNK
     Route: 048

REACTIONS (2)
  - DEATH [None]
  - HEPATIC FAILURE [None]
